FAERS Safety Report 6186187-1 (Version None)
Quarter: 2009Q2

REPORT INFORMATION
  Report Type: 
  Country: None (occurrence: None)
  Receive Date: 20090511
  Receipt Date: 20090429
  Transmission Date: 20091009
  Serious: Yes (Other)
  Sender: FDA-Public Use
  Company Number: GB-PFIZER INC-2007078940

PATIENT
  Age: 21 Year

DRUGS (5)
  1. AZITHROMYCIN [Suspect]
     Indication: INFLAMMATION
     Dates: start: 20030101, end: 20030101
  2. AZITHROMYCIN [Interacting]
     Indication: ANTIINFLAMMATORY THERAPY
  3. COLOMYCIN [Interacting]
     Indication: PSEUDOMONAS INFECTION
     Dosage: 2MIU; 6MIU
     Route: 042
     Dates: start: 20031101
  4. TOBRAMYCIN [Interacting]
     Indication: PSEUDOMONAS INFECTION
     Dosage: 8 MG/KG, 1X/DAY, EVERY DAY
     Route: 042
     Dates: start: 20031101
  5. IBUPROFEN [Interacting]
     Indication: PSEUDOMONAS INFECTION
     Dates: start: 20030101, end: 20030101

REACTIONS (10)
  - ARTHROPATHY [None]
  - BLOOD CREATININE INCREASED [None]
  - BLOOD UREA INCREASED [None]
  - DRUG INTERACTION [None]
  - DYSPEPSIA [None]
  - HYPOPHAGIA [None]
  - INFLUENZA LIKE ILLNESS [None]
  - RENAL FAILURE ACUTE [None]
  - VOMITING [None]
  - WEIGHT DECREASED [None]
